FAERS Safety Report 13063165 (Version 1)
Quarter: 2016Q4

REPORT INFORMATION
  Report Type: Spontaneous
  Country: US (occurrence: US)
  Receive Date: 20161227
  Receipt Date: 20161227
  Transmission Date: 20170207
  Serious: Yes (Other)
  Sender: FDA-Public Use
  Company Number: US-ASTRAZENECA-2016SF34944

PATIENT
  Sex: Female

DRUGS (20)
  1. IBRANCE [Suspect]
     Active Substance: PALBOCICLIB
     Route: 048
  2. COENZYME Q10 [Concomitant]
     Active Substance: UBIDECARENONE
     Route: 048
  3. SPIRONOLACTONE. [Concomitant]
     Active Substance: SPIRONOLACTONE
     Route: 048
  4. SYNTHROID [Concomitant]
     Active Substance: LEVOTHYROXINE SODIUM
     Route: 048
  5. LINZESS [Concomitant]
     Active Substance: LINACLOTIDE
     Route: 048
  6. ESTAZOLAM. [Concomitant]
     Active Substance: ESTAZOLAM
     Route: 048
  7. PRAVASTATIN. [Concomitant]
     Active Substance: PRAVASTATIN
     Route: 048
  8. VITAMIN D3 [Concomitant]
     Active Substance: CHOLECALCIFEROL
     Route: 048
  9. AMBIEN [Concomitant]
     Active Substance: ZOLPIDEM TARTRATE
     Indication: SLEEP DISORDER
     Dosage: 1 DF AT NIGHT, AS REQUIRED
     Route: 048
  10. ASPIR [Concomitant]
     Active Substance: ASPIRIN
     Route: 048
  11. COREG [Concomitant]
     Active Substance: CARVEDILOL
     Route: 048
  12. OMEPRAZOLE. [Suspect]
     Active Substance: OMEPRAZOLE
     Route: 048
  13. FISH OIL [Concomitant]
     Active Substance: FISH OIL
  14. CRANBERRY PLUS [Concomitant]
  15. SERTRALINE HCL [Concomitant]
     Active Substance: SERTRALINE HYDROCHLORIDE
     Route: 048
  16. ULORIC [Concomitant]
     Active Substance: FEBUXOSTAT
     Route: 048
  17. CRESTOR [Suspect]
     Active Substance: ROSUVASTATIN CALCIUM
     Route: 048
  18. TAMOXIFEN [Suspect]
     Active Substance: TAMOXIFEN
     Route: 048
  19. DOXAZOSIN [Concomitant]
     Active Substance: DOXAZOSIN\DOXAZOSIN MESYLATE
     Route: 048
  20. TORSEMIDE. [Concomitant]
     Active Substance: TORSEMIDE
     Route: 048

REACTIONS (1)
  - Metastatic neoplasm [Unknown]
